FAERS Safety Report 18251000 (Version 2)
Quarter: 2020Q4

REPORT INFORMATION
  Report Type: Spontaneous
  Country: US (occurrence: US)
  Receive Date: 20200909
  Receipt Date: 20201008
  Transmission Date: 20210113
  Serious: No
  Sender: FDA-Public Use
  Company Number: US-ASTRAZENECA-2020SF11235

PATIENT
  Sex: Male
  Weight: 129.3 kg

DRUGS (9)
  1. ATENOLOL. [Concomitant]
     Active Substance: ATENOLOL
  2. TYLENOL EXTRA STRENGTH [Concomitant]
     Active Substance: ACETAMINOPHEN
     Indication: PAIN
  3. GLIMPEZIDE [Concomitant]
  4. VITAMIN D SUPPLEMENTS [Concomitant]
  5. BABY ASPIRIN [Concomitant]
     Active Substance: ASPIRIN
  6. REPAGLINIDE. [Concomitant]
     Active Substance: REPAGLINIDE
  7. BYDUREON [Suspect]
     Active Substance: EXENATIDE
     Indication: TYPE 2 DIABETES MELLITUS
     Route: 058
  8. CIALIS [Concomitant]
     Active Substance: TADALAFIL
     Indication: BENIGN PROSTATIC HYPERPLASIA
  9. LANTUS [Concomitant]
     Active Substance: INSULIN GLARGINE

REACTIONS (6)
  - Intentional device misuse [Unknown]
  - Device leakage [Unknown]
  - Injection site extravasation [Unknown]
  - Drug dose omission by device [Unknown]
  - Incorrect dose administered by device [Unknown]
  - Injection site mass [Unknown]
